FAERS Safety Report 25703445 (Version 1)
Quarter: 2025Q3

REPORT INFORMATION
  Report Type: Spontaneous
  Country: EU (occurrence: EU)
  Receive Date: 20250820
  Receipt Date: 20250820
  Transmission Date: 20251021
  Serious: Yes (Death, Other)
  Sender: AMGEN
  Company Number: EU-AMGEN-ROUSP2025162808

PATIENT
  Age: 67 Year
  Sex: Female

DRUGS (11)
  1. TRASTUZUMAB [Suspect]
     Active Substance: TRASTUZUMAB
     Indication: HER2 positive breast cancer
     Route: 065
  2. BEVACIZUMAB [Suspect]
     Active Substance: BEVACIZUMAB
     Indication: Rectal cancer metastatic
     Route: 065
     Dates: start: 202301
  3. SOTORASIB [Suspect]
     Active Substance: SOTORASIB
     Indication: Rectal cancer metastatic
     Dosage: 240 MILLIGRAM, QD
     Route: 065
     Dates: start: 2023, end: 202310
  4. SOTORASIB [Suspect]
     Active Substance: SOTORASIB
     Indication: K-ras gene mutation
  5. VECTIBIX [Suspect]
     Active Substance: PANITUMUMAB
     Indication: Rectal cancer metastatic
     Route: 065
     Dates: start: 2023, end: 202310
  6. VECTIBIX [Suspect]
     Active Substance: PANITUMUMAB
     Indication: K-ras gene mutation
  7. LETROZOLE [Concomitant]
     Active Substance: LETROZOLE
     Indication: HER2 positive breast cancer
  8. OXALIPLATIN [Concomitant]
     Active Substance: OXALIPLATIN
  9. TRIFLURIDINE [Concomitant]
     Active Substance: TRIFLURIDINE
     Indication: Rectal cancer metastatic
     Dates: start: 202310
  10. TIPIRACIL [Concomitant]
     Active Substance: TIPIRACIL
     Indication: Rectal cancer metastatic
     Dates: start: 202310
  11. MORPHINE [Concomitant]
     Active Substance: MORPHINE
     Indication: Pain

REACTIONS (5)
  - Death [Fatal]
  - Neurotoxicity [Unknown]
  - Rectal cancer metastatic [Unknown]
  - Therapy partial responder [Unknown]
  - Off label use [Unknown]

NARRATIVE: CASE EVENT DATE: 20230101
